FAERS Safety Report 24389910 (Version 1)
Quarter: 2024Q4

REPORT INFORMATION
  Report Type: Spontaneous
  Country: US (occurrence: US)
  Receive Date: 20241003
  Receipt Date: 20241003
  Transmission Date: 20250114
  Serious: No
  Sender: JOHNSON AND JOHNSON
  Company Number: US-JNJFOC-20240942130

PATIENT
  Sex: Male

DRUGS (4)
  1. TREMFYA [Suspect]
     Active Substance: GUSELKUMAB
     Indication: Psoriasis
     Route: 065
  2. TREMFYA [Suspect]
     Active Substance: GUSELKUMAB
  3. TREMFYA [Suspect]
     Active Substance: GUSELKUMAB
  4. VITAMIN B12 [Concomitant]
     Active Substance: CYANOCOBALAMIN
     Indication: Product used for unknown indication

REACTIONS (14)
  - Dizziness [Unknown]
  - Palpitations [Unknown]
  - Chills [Unknown]
  - Headache [Unknown]
  - Paraesthesia [Unknown]
  - Injection site pain [Unknown]
  - Hypertension [Unknown]
  - Vitamin B12 deficiency [Unknown]
  - Inflammation [Unknown]
  - Asthenia [Unknown]
  - Decreased appetite [Unknown]
  - Gait disturbance [Unknown]
  - Lethargy [Unknown]
  - Anxiety [Unknown]
